FAERS Safety Report 25690823 (Version 1)
Quarter: 2025Q3

REPORT INFORMATION
  Report Type: Spontaneous
  Country: US (occurrence: None)
  Receive Date: 20250816
  Receipt Date: 20250816
  Transmission Date: 20251020
  Serious: Yes (Hospitalization)
  Sender: FDA-CTU
  Company Number: None

PATIENT
  Sex: Female

DRUGS (2)
  1. NU SKIN CLEAR ACTION ACNE MEDICATION DAY TREATMENT [Suspect]
     Active Substance: SALICYLIC ACID
     Indication: Product used for unknown indication
     Dates: start: 20061201, end: 20080929
  2. DIETARY SUPPLEMENT [Suspect]
     Active Substance: DIETARY SUPPLEMENT
     Dates: start: 20070202, end: 20080929

REACTIONS (2)
  - Hypersensitivity [None]
  - Deformity [None]

NARRATIVE: CASE EVENT DATE: 20061216
